FAERS Safety Report 9146891 (Version 2)
Quarter: 2013Q1

REPORT INFORMATION
  Report Type: Spontaneous
  Country: US (occurrence: None)
  Receive Date: 20130221
  Receipt Date: 20130221
  Transmission Date: 20140127
  Serious: Yes (Death)
  Sender: FDA-Public Use
  Company Number: ADR-2013UNK008

PATIENT
  Age: 56 Day
  Sex: 0

DRUGS (3)
  1. EFAVIRENZ [Suspect]
     Indication: ACQUIRED IMMUNODEFICIENCY SYNDROME
     Route: 048
  2. LAMIVUDINE+ZIDOVUDINE [Concomitant]
  3. LOPINAVIR+RITONAVIR [Concomitant]

REACTIONS (2)
  - Abortion spontaneous [None]
  - Maternal drugs affecting foetus [None]
